FAERS Safety Report 4991543-0 (Version None)
Quarter: 2006Q2

REPORT INFORMATION
  Report Type: 
  Country: None (occurrence: None)
  Receive Date: 20060502
  Receipt Date: 20060417
  Transmission Date: 20061013
  Serious: Yes (Hospitalization)
  Sender: FDA-Public Use
  Company Number: 2006-BP-04303RO

PATIENT
  Age: 18 Year
  Sex: Female

DRUGS (1)
  1. AZATHIOPRINE [Suspect]
     Indication: MULTIPLE SCLEROSIS
     Dosage: 50 MG DAILY

REACTIONS (9)
  - DISEASE PROGRESSION [None]
  - FATIGUE [None]
  - HAEMATOMA [None]
  - HAEMOGLOBIN DECREASED [None]
  - HEADACHE [None]
  - PLATELET COUNT DECREASED [None]
  - PYREXIA [None]
  - VERTIGO [None]
  - WHITE BLOOD CELL COUNT DECREASED [None]
